FAERS Safety Report 6492057-1 (Version None)
Quarter: 2009Q4

REPORT INFORMATION
  Report Type: 
  Country: None (occurrence: None)
  Receive Date: 20091125
  Receipt Date: 20090529
  Transmission Date: 20100525
  Serious: Yes (Other)
  Sender: FDA-Public Use
  Company Number: 2009BH009523

PATIENT
  Age: 59 Year
  Sex: Female
  Weight: 76 kg

DRUGS (15)
  1. DIANEAL [Suspect]
     Indication: PERITONEAL DIALYSIS
     Dosage: 10 L ; EVERY DAY ; IP
     Route: 033
     Dates: start: 20080229
  2. EXTRANEAL [Suspect]
     Indication: PERITONEAL DIALYSIS
     Dosage: ; UNK ; IP
     Route: 033
     Dates: start: 20080229
  3. CALCITRIOL [Concomitant]
  4. CARDIZEM [Concomitant]
  5. DOMERIDONE [Concomitant]
  6. EPOGEN [Concomitant]
  7. FLUOXETINE [Concomitant]
  8. HYDRALAZINE [Concomitant]
  9. LANTUS [Concomitant]
  10. LASIX [Concomitant]
  11. LEVOTHYROXINE SODIUM [Concomitant]
  12. PRAVASTATIN [Concomitant]
  13. RENAGEL [Concomitant]
  14. ZYRTEC [Concomitant]
  15. OMEPRAZOLE [Concomitant]

REACTIONS (2)
  - CONSTIPATION [None]
  - PERITONITIS BACTERIAL [None]
